FAERS Safety Report 8933703 (Version 2)
Quarter: 2012Q4

REPORT INFORMATION
  Report Type: 
  Country: FR (occurrence: FR)
  Receive Date: 20121129
  Receipt Date: 20121206
  Transmission Date: 20130627
  Serious: Yes (Death, Hospitalization)
  Sender: FDA-Public Use
  Company Number: FR-ROCHE-1159346

PATIENT
  Age: 72 Year
  Sex: Male
  Weight: 70 kg

DRUGS (2)
  1. ZELBORAF [Suspect]
     Indication: METASTATIC MALIGNANT MELANOMA
     Route: 065
     Dates: start: 20120922
  2. ZELBORAF [Interacting]
     Route: 065
     Dates: start: 20121004

REACTIONS (3)
  - Skin toxicity [Fatal]
  - Oesophagitis [Fatal]
  - Drug interaction [Unknown]
